FAERS Safety Report 12584365 (Version 1)
Quarter: 2016Q3

REPORT INFORMATION
  Report Type: Report from Study
  Country: US (occurrence: US)
  Receive Date: 20160722
  Receipt Date: 20160722
  Transmission Date: 20161109
  Serious: Yes (Other)
  Sender: FDA-Public Use
  Company Number: US-MYLANLABS-2015M1048021

PATIENT

DRUGS (1)
  1. DEXMEDETOMIDINE. [Suspect]
     Active Substance: DEXMEDETOMIDINE
     Indication: SEDATIVE THERAPY
     Dosage: 2 MICROG/KG OVER 10 MINUTES
     Route: 040

REACTIONS (3)
  - Hypopnoea [Unknown]
  - Bradycardia [Unknown]
  - Agitation [Unknown]
